FAERS Safety Report 7451537-2 (Version None)
Quarter: 2011Q2

REPORT INFORMATION
  Report Type: 
  Country: None (occurrence: None)
  Receive Date: 20110502
  Receipt Date: 20110426
  Transmission Date: 20111010
  Serious: Yes (Death, Other)
  Sender: FDA-Public Use
  Company Number: MX-ASTRAZENECA-2011SE24096

PATIENT
  Age: 1 Year
  Sex: Male

DRUGS (1)
  1. MERREM [Suspect]
     Indication: BACTERAEMIA
     Route: 042

REACTIONS (5)
  - CARDIAC ARREST [None]
  - BODY TEMPERATURE INCREASED [None]
  - BACTERAEMIA [None]
  - CONVULSION [None]
  - DRUG INEFFECTIVE [None]
